FAERS Safety Report 6052534-4 (Version None)
Quarter: 2009Q1

REPORT INFORMATION
  Report Type: 
  Country: None (occurrence: None)
  Receive Date: 20090121
  Receipt Date: 20090107
  Transmission Date: 20090719
  Serious: Yes (Other)
  Sender: FDA-Public Use
  Company Number: 138408

PATIENT
  Age: 19 Year
  Sex: Male

DRUGS (9)
  1. PHENOBARBITAL TAB [Suspect]
     Indication: STATUS EPILEPTICUS
     Dosage: CUMULATIVE DOSE OF ALMOST 10 Q, NOT REPORTED); INTRAVENOUS
     Route: 042
  2. PENTOBARBITAL CAP [Suspect]
     Indication: STATUS EPILEPTICUS
     Dosage: 4 MG/KG PER HOUR; INTRAVENOUS
     Route: 042
  3. LORAZEPAM [Concomitant]
  4. PHENYTOIN [Concomitant]
  5. MIDAZOLAM HCL [Concomitant]
  6. PROPOFOL [Concomitant]
  7. LEVETIRACETAM [Concomitant]
  8. VALPROIC ACID [Concomitant]
  9. KETAMINE HCL [Concomitant]

REACTIONS (8)
  - BLOOD CREATININE INCREASED [None]
  - BLOOD OSMOLARITY INCREASED [None]
  - HYPOTENSION [None]
  - LACTIC ACIDOSIS [None]
  - OSMOLAR GAP ABNORMAL [None]
  - RENAL IMPAIRMENT [None]
  - SEPTIC SHOCK [None]
  - THERAPEUTIC AGENT TOXICITY [None]
